FAERS Safety Report 24622761 (Version 2)
Quarter: 2024Q4

REPORT INFORMATION
  Report Type: Spontaneous
  Country: US (occurrence: US)
  Receive Date: 20241115
  Receipt Date: 20241115
  Transmission Date: 20250115
  Serious: Yes (Life-Threatening, Other)
  Sender: AMGEN
  Company Number: US-AMGEN-USASP2024220642

PATIENT
  Age: 9 Year
  Sex: Male

DRUGS (2)
  1. PREDNISONE [Suspect]
     Active Substance: PREDNISONE
     Indication: Cough
     Dosage: UNK
     Route: 065
  2. PREDNISONE [Suspect]
     Active Substance: PREDNISONE
     Indication: Dyspnoea

REACTIONS (6)
  - Hypoxia [Unknown]
  - Pneumothorax [Unknown]
  - Fibrinous bronchitis [Unknown]
  - Atelectasis [Unknown]
  - Off label use [Unknown]
  - Drug ineffective for unapproved indication [Unknown]
